FAERS Safety Report 5914936-3 (Version None)
Quarter: 2008Q4

REPORT INFORMATION
  Report Type: 
  Country: None (occurrence: None)
  Receive Date: 20081008
  Receipt Date: 20080926
  Transmission Date: 20090506
  Serious: Yes (Hospitalization)
  Sender: FDA-Public Use
  Company Number: TRP_05906_2008

PATIENT
  Sex: Female

DRUGS (2)
  1. RIBAVIRIN [Suspect]
     Indication: HEPATITIS C VIRUS TEST
     Dosage: (600 MG BID ORAL)
     Route: 048
     Dates: start: 20080303
  2. PEGASYS [Suspect]
     Indication: HEPATITIS C VIRUS TEST
     Dosage: (180 ?G 1X/WEEK SUBCUTANEOUS)
     Route: 058
     Dates: start: 20080303

REACTIONS (14)
  - ANAEMIA [None]
  - COUGH [None]
  - CRYING [None]
  - DRY SKIN [None]
  - EMOTIONAL DISORDER [None]
  - FATIGUE [None]
  - FEELING OF DESPAIR [None]
  - HYPOTHYROIDISM [None]
  - INSOMNIA [None]
  - MENORRHAGIA [None]
  - PRURITUS [None]
  - URTICARIA [None]
  - WEIGHT DECREASED [None]
  - WEIGHT INCREASED [None]
